FAERS Safety Report 17212669 (Version 1)
Quarter: 2019Q4

REPORT INFORMATION
  Report Type: Spontaneous
  Country: DE (occurrence: DE)
  Receive Date: 20191230
  Receipt Date: 20191230
  Transmission Date: 20200122
  Serious: Yes (Other)
  Sender: FDA-Public Use
  Company Number: NVSC2019DE081468

PATIENT
  Age: 79 Year
  Sex: Female

DRUGS (2)
  1. LEVETIRACETAM HEXAL 250 MG FILMTABLETTEN [Suspect]
     Active Substance: LEVETIRACETAM
     Indication: EPILEPSY
     Dosage: 750 MG, QD
     Route: 065
     Dates: end: 2019
  2. LEVETIRACETAM HEXAL 250 MG FILMTABLETTEN [Suspect]
     Active Substance: LEVETIRACETAM
     Dosage: 325 MG, QD (0-0-1)
     Route: 065
     Dates: start: 2019

REACTIONS (1)
  - Measles [Unknown]

NARRATIVE: CASE EVENT DATE: 20191220
